FAERS Safety Report 19472123 (Version 1)
Quarter: 2021Q2

REPORT INFORMATION
  Report Type: Spontaneous
  Country: ZA (occurrence: ZA)
  Receive Date: 20210629
  Receipt Date: 20210629
  Transmission Date: 20210717
  Serious: Yes (Hospitalization, Other)
  Sender: FDA-Public Use
  Company Number: ZA-AUROBINDO-AUR-APL-2009-00715

PATIENT
  Age: 9 Year
  Sex: Female
  Weight: 16 kg

DRUGS (3)
  1. LAMIVUDINE. [Suspect]
     Active Substance: LAMIVUDINE
     Indication: HIV INFECTION
     Dosage: UNK UNK,UNK,UNKNOWN,UNKNOWN
     Route: 065
  2. EFAVIRENZ. [Suspect]
     Active Substance: EFAVIRENZ
     Indication: HIV INFECTION
     Dosage: UNK UNK,UNK,UNKNOWN,UNKNOWN
     Route: 065
  3. STAVUDINE. [Suspect]
     Active Substance: STAVUDINE
     Indication: HIV INFECTION
     Dosage: UNK UNK,UNK,UNKNOWN,UNKNOWN
     Route: 065

REACTIONS (15)
  - Delirium [Recovered/Resolved]
  - Lethargy [Recovered/Resolved]
  - Social avoidant behaviour [Recovered/Resolved]
  - Euphoric mood [Recovered/Resolved]
  - Apathy [Recovered/Resolved]
  - Poor quality sleep [Recovered/Resolved]
  - Nightmare [Recovered/Resolved]
  - Depression [Recovered/Resolved]
  - Anxiety [Recovered/Resolved]
  - Fear [Recovered/Resolved]
  - Hallucinations, mixed [Recovered/Resolved]
  - Agitation [Recovered/Resolved]
  - Confusional state [Recovered/Resolved]
  - Disinhibition [Recovered/Resolved]
  - Feeling abnormal [Recovered/Resolved]
